FAERS Safety Report 5912732-4 (Version None)
Quarter: 2008Q4

REPORT INFORMATION
  Report Type: 
  Country: None (occurrence: None)
  Receive Date: 20081008
  Receipt Date: 20080926
  Transmission Date: 20090506
  Serious: Yes (Other)
  Sender: FDA-Public Use
  Company Number: US-ELI_LILLY_AND_COMPANY-US200809006302

PATIENT
  Sex: Male

DRUGS (3)
  1. STRATTERA [Suspect]
     Indication: ATTENTION DEFICIT/HYPERACTIVITY DISORDER
     Dosage: 90 MG, DAILY (1/D)
  2. STRATTERA [Suspect]
     Dosage: 40 MG, EACH MORNING
  3. STRATTERA [Suspect]
     Dosage: 10 MG, DAILY (1/D)

REACTIONS (5)
  - DISTURBANCE IN ATTENTION [None]
  - LIBIDO DECREASED [None]
  - RECTAL HAEMORRHAGE [None]
  - SEXUAL DYSFUNCTION [None]
  - ULCER [None]
